FAERS Safety Report 23128841 (Version 1)
Quarter: 2023Q4

REPORT INFORMATION
  Report Type: Report from Study
  Country: IT (occurrence: IT)
  Receive Date: 20231031
  Receipt Date: 20231031
  Transmission Date: 20240109
  Serious: Yes (Hospitalization)
  Sender: FDA-Public Use
  Company Number: None

PATIENT
  Age: 47 Year
  Sex: Male

DRUGS (2)
  1. QUETIAPINE FUMARATE [Suspect]
     Active Substance: QUETIAPINE FUMARATE
     Indication: Product used for unknown indication
     Dosage: DOSAGGIO: 400?FREQUENZA SOMMINISTRAZIONE: TOTALE?VIA SOMMINISTRAZIONE: ORALE
  2. RISPERIDONE [Concomitant]
     Active Substance: RISPERIDONE

REACTIONS (5)
  - Headache [Recovering/Resolving]
  - Vomiting [Recovering/Resolving]
  - Hallucination [Recovering/Resolving]
  - Drug abuse [Recovering/Resolving]
  - Abdominal pain upper [Recovering/Resolving]

NARRATIVE: CASE EVENT DATE: 20230804
